FAERS Safety Report 25858724 (Version 1)
Quarter: 2025Q3

REPORT INFORMATION
  Report Type: Other
  Country: CH (occurrence: CH)
  Receive Date: 20250929
  Receipt Date: 20250929
  Transmission Date: 20251020
  Serious: Yes (Hospitalization)
  Sender: Atnahs Healthcare
  Company Number: None

PATIENT

DRUGS (4)
  1. VALIUM [Suspect]
     Active Substance: DIAZEPAM
     Indication: Mental disorder
     Route: 048
     Dates: start: 2024
  2. REXULTI [Suspect]
     Active Substance: BREXPIPRAZOLE
     Indication: Mental disorder
     Route: 048
     Dates: start: 2024
  3. ANAFRANIL [Suspect]
     Active Substance: CLOMIPRAMINE HYDROCHLORIDE
     Indication: Mental disorder
     Route: 048
     Dates: start: 2024
  4. ZOLPIDEM [Suspect]
     Active Substance: ZOLPIDEM TARTRATE
     Indication: Mental disorder
     Route: 048
     Dates: start: 2024

REACTIONS (2)
  - Dysphagia [Not Recovered/Not Resolved]
  - Extrapyramidal disorder [Not Recovered/Not Resolved]

NARRATIVE: CASE EVENT DATE: 20250701
